FAERS Safety Report 6631535-9 (Version None)
Quarter: 2010Q1

REPORT INFORMATION
  Report Type: 
  Country: None (occurrence: None)
  Receive Date: 20100312
  Receipt Date: 20100303
  Transmission Date: 20100710
  Serious: Yes (Hospitalization)
  Sender: FDA-Public Use
  Company Number: PHEH2010US02801

PATIENT
  Sex: Female

DRUGS (2)
  1. EXJADE [Suspect]
     Indication: THALASSAEMIA
     Dosage: 2000 MG, QD
     Route: 048
  2. EXJADE [Suspect]
     Indication: IRON OVERLOAD

REACTIONS (1)
  - CHEST PAIN [None]
